FAERS Safety Report 25357133 (Version 1)
Quarter: 2025Q2

REPORT INFORMATION
  Report Type: Spontaneous
  Country: US (occurrence: US)
  Receive Date: 20250526
  Receipt Date: 20250526
  Transmission Date: 20250716
  Serious: No
  Sender: SANOFI AVENTIS
  Company Number: US-SANOFI-02529928

PATIENT
  Age: 57 Year
  Sex: Male

DRUGS (3)
  1. LANTUS SOLOSTAR [Suspect]
     Active Substance: INSULIN GLARGINE
     Indication: Type 2 diabetes mellitus
     Dosage: 35 U, QD
     Route: 065
  2. DEXTROSE [Suspect]
     Active Substance: DEXTROSE MONOHYDRATE
     Route: 065
  3. INSULIN HUMAN [Concomitant]
     Active Substance: INSULIN HUMAN

REACTIONS (2)
  - Blood glucose increased [Unknown]
  - Peritoneal dialysis [Unknown]
